FAERS Safety Report 10176648 (Version 4)
Quarter: 2014Q2

REPORT INFORMATION
  Report Type: Report from Study
  Country: US (occurrence: US)
  Receive Date: 20140516
  Receipt Date: 20140630
  Transmission Date: 20141212
  Serious: Yes (Other)
  Sender: FDA-Public Use
  Company Number: US-SA-2014SA060720

PATIENT
  Age: 46 Year
  Sex: Female
  Weight: 90 kg

DRUGS (10)
  1. AUBAGIO [Suspect]
     Indication: MULTIPLE SCLEROSIS
     Route: 048
     Dates: start: 20140422, end: 20140429
  2. AUBAGIO [Suspect]
     Indication: MULTIPLE SCLEROSIS
     Route: 048
     Dates: start: 20140519
  3. CEFDINIR [Concomitant]
  4. ALBUTEROL [Concomitant]
  5. PREDNISONE [Concomitant]
     Dosage: STRENGTH: 20 MG
  6. CYANOCOBALAMIN [Concomitant]
     Dates: start: 201311
  7. IRON [Concomitant]
     Indication: BLOOD IRON DECREASED
     Dates: start: 201403
  8. VITAMIN D3 [Concomitant]
     Dates: start: 201311
  9. PAXIL [Concomitant]
     Indication: DEPRESSION
     Dates: start: 201403
  10. PRILOSEC [Concomitant]
     Indication: DYSPEPSIA
     Dates: start: 2013

REACTIONS (3)
  - Pneumonia [Unknown]
  - Bronchitis [Not Recovered/Not Resolved]
  - Urinary incontinence [Unknown]
